FAERS Safety Report 7712574-3 (Version None)
Quarter: 2011Q3

REPORT INFORMATION
  Report Type: 
  Country: None (occurrence: None)
  Receive Date: 20110822
  Receipt Date: 20110811
  Transmission Date: 20111222
  Serious: Yes (Other)
  Sender: FDA-Public Use
  Company Number: TPA2011A04824

PATIENT
  Age: 54 Year
  Sex: Female

DRUGS (1)
  1. ACTOS [Suspect]
     Dosage: } 10 YEARS

REACTIONS (4)
  - BLADDER CANCER [None]
  - DISEASE RECURRENCE [None]
  - ANXIETY [None]
  - ECONOMIC PROBLEM [None]
